FAERS Safety Report 24314237 (Version 1)
Quarter: 2024Q3

REPORT INFORMATION
  Report Type: Spontaneous
  Country: ES (occurrence: ES)
  Receive Date: 20240912
  Receipt Date: 20240912
  Transmission Date: 20241017
  Serious: Yes (Hospitalization, Other)
  Sender: MERCK
  Company Number: None

PATIENT
  Age: 66 Year
  Sex: Female
  Weight: 63.6 kg

DRUGS (3)
  1. KEYTRUDA [Suspect]
     Active Substance: PEMBROLIZUMAB
     Indication: Malignant melanoma
     Dosage: 200 MG EVERY 21 DAYS
     Route: 042
     Dates: start: 20231027, end: 20231207
  2. MEKINIST [Suspect]
     Active Substance: TRAMETINIB DIMETHYL SULFOXIDE
     Indication: Malignant melanoma
     Dosage: 1 TABLET EVERY 24 HOURS
     Route: 048
     Dates: start: 20240104, end: 20240129
  3. TAFINLAR [Suspect]
     Active Substance: DABRAFENIB MESYLATE
     Indication: Malignant melanoma
     Dosage: 2 CAPSULES EVERY 12 HOURS
     Route: 048
     Dates: start: 20240104, end: 20240129

REACTIONS (1)
  - Paraparesis [Recovered/Resolved]

NARRATIVE: CASE EVENT DATE: 20240118
